FAERS Safety Report 13837985 (Version 2)
Quarter: 2017Q3

REPORT INFORMATION
  Report Type: Spontaneous
  Country: KR (occurrence: KR)
  Receive Date: 20170807
  Receipt Date: 20170811
  Transmission Date: 20171127
  Serious: No
  Sender: FDA-Public Use
  Company Number: KR-009507513-1708KOR002421

PATIENT
  Age: 47 Year
  Sex: Male

DRUGS (1)
  1. JANUVIA 25MG [Suspect]
     Active Substance: SITAGLIPTIN PHOSPHATE

REACTIONS (2)
  - Blood glucose abnormal [Unknown]
  - Hot flush [Unknown]
